FAERS Safety Report 19587153 (Version 1)
Quarter: 2021Q3

REPORT INFORMATION
  Report Type: Spontaneous
  Country: CN (occurrence: CN)
  Receive Date: 20210721
  Receipt Date: 20210721
  Transmission Date: 20211014
  Serious: Yes (Death, Other)
  Sender: FDA-Public Use
  Company Number: CN-SA-2021SA234503

PATIENT
  Age: 37 Year
  Sex: Male

DRUGS (1)
  1. RIFAMPICIN [Suspect]
     Active Substance: RIFAMPIN
     Indication: TUBERCULOUS PLEURISY
     Dosage: 450 MG, QD

REACTIONS (11)
  - Toxicity to various agents [Fatal]
  - Hepatic function abnormal [Fatal]
  - Abdominal distension [Fatal]
  - Decreased appetite [Fatal]
  - Pyrexia [Fatal]
  - Melaena [Fatal]
  - Coma hepatic [Fatal]
  - Ocular icterus [Fatal]
  - Oliguria [Fatal]
  - Haematemesis [Fatal]
  - Fatigue [Fatal]
